FAERS Safety Report 17960385 (Version 1)
Quarter: 2020Q2

REPORT INFORMATION
  Report Type: Spontaneous
  Country: FR (occurrence: FR)
  Receive Date: 20200630
  Receipt Date: 20200630
  Transmission Date: 20200714
  Serious: Yes (Disabling, Other)
  Sender: FDA-Public Use
  Company Number: FR-SUN PHARMACEUTICAL INDUSTRIES LTD-2020RR-251945

PATIENT
  Age: 34 Year
  Sex: Female

DRUGS (7)
  1. PARACETAMOL [Suspect]
     Active Substance: ACETAMINOPHEN
     Indication: PYREXIA
     Dosage: 1 GRAM, DAILY
     Route: 048
     Dates: start: 20130225, end: 20130304
  2. LOVENOX [Concomitant]
     Active Substance: ENOXAPARIN SODIUM
     Indication: PRODUCT USED FOR UNKNOWN INDICATION
     Dosage: UNK
     Route: 065
  3. GENTAMICINE PANPHARMA [Suspect]
     Active Substance: GENTAMICIN
     Indication: INFECTION
     Dosage: 240 MILLIGRAM, DAILY
     Route: 042
     Dates: start: 20130301, end: 20130303
  4. ACTISKENAN [Concomitant]
     Active Substance: MORPHINE SULFATE
     Indication: PRODUCT USED FOR UNKNOWN INDICATION
     Dosage: UNK
     Route: 065
  5. CEFTRIAXONE PANPHARMA [Suspect]
     Active Substance: CEFTRIAXONE
     Indication: INFECTION
     Dosage: 1 GRAM, DAILY
     Route: 065
     Dates: start: 20130301, end: 20130303
  6. ACUPAN [Concomitant]
     Active Substance: NEFOPAM HYDROCHLORIDE
     Indication: PRODUCT USED FOR UNKNOWN INDICATION
     Dosage: UNK
     Route: 065
  7. BIPROFENID [Suspect]
     Active Substance: KETOPROFEN
     Indication: PAIN
     Dosage: 150 MILLIGRAM, DAILY
     Route: 048
     Dates: start: 20130226, end: 20130301

REACTIONS (1)
  - Deafness neurosensory [Not Recovered/Not Resolved]

NARRATIVE: CASE EVENT DATE: 201303
